FAERS Safety Report 8980762 (Version 2)
Quarter: 2013Q1

REPORT INFORMATION
  Report Type: Report from Study
  Country: FR (occurrence: FR)
  Receive Date: 20121221
  Receipt Date: 20130322
  Transmission Date: 20140127
  Serious: Yes (Hospitalization)
  Sender: FDA-Public Use
  Company Number: FR-PFIZER INC-2012282454

PATIENT
  Age: 62 Year
  Sex: Male

DRUGS (2)
  1. SUTENT [Suspect]
     Indication: CHOLANGIOCARCINOMA
     Dosage: 37.5 MG, 1X/DAY
     Dates: start: 20120904, end: 20121028
  2. SUTENT [Suspect]
     Dosage: 25 MG, 1X/DAY
     Dates: start: 20121105

REACTIONS (1)
  - Thrombotic microangiopathy [Recovered/Resolved]
